FAERS Safety Report 4506670-1 (Version None)
Quarter: 2004Q4

REPORT INFORMATION
  Report Type: 
  Country: None (occurrence: None)
  Receive Date: 20041117
  Receipt Date: 20041102
  Transmission Date: 20050328
  Serious: Yes (Death, Hospitalization)
  Sender: FDA-Public Use
  Company Number: 2004-BP-11175BP

PATIENT
  Age: 42 Year
  Sex: Female

DRUGS (3)
  1. VIRAMUNE [Suspect]
     Indication: HIV INFECTION
     Dosage: PO
     Route: 048
     Dates: start: 20040621, end: 20040823
  2. STAVUDINE (STAVUDINE) [Concomitant]
  3. LAMIVUDINE (LAMIVUDINE) [Concomitant]

REACTIONS (3)
  - CERVIX CARCINOMA STAGE III [None]
  - DYSPNOEA [None]
  - GENERALISED OEDEMA [None]
